FAERS Safety Report 9108388 (Version 2)
Quarter: 2013Q3

REPORT INFORMATION
  Report Type: Report from Study
  Country: MX (occurrence: MX)
  Receive Date: 20130222
  Receipt Date: 20130806
  Transmission Date: 20140515
  Serious: Yes (Other)
  Sender: FDA-Public Use
  Company Number: PHHY2013MX017428

PATIENT
  Age: 72 Year
  Sex: Female

DRUGS (2)
  1. ONBREZ [Suspect]
     Indication: RESPIRATORY FAILURE
     Dosage: 300 UG, QD
  2. ONBREZ [Suspect]
     Indication: OFF LABEL USE

REACTIONS (6)
  - Infarction [Recovered/Resolved]
  - Tuberculosis [Recovered/Resolved]
  - Fatigue [Unknown]
  - Increased upper airway secretion [Recovered/Resolved]
  - General physical health deterioration [Not Recovered/Not Resolved]
  - Incorrect dose administered [Unknown]
